FAERS Safety Report 9455784 (Version 2)
Quarter: 2013Q3

REPORT INFORMATION
  Report Type: Spontaneous
  Country: DE (occurrence: DE)
  Receive Date: 20130813
  Receipt Date: 20130821
  Transmission Date: 20140515
  Serious: Yes (Death, Life-Threatening)
  Sender: FDA-Public Use
  Company Number: DE-B.I. PHARMACEUTICALS,INC./RIDGEFIELD-2013-BI-24376DE

PATIENT
  Age: 73 Year
  Sex: Male
  Weight: 65 kg

DRUGS (6)
  1. PRADAXA [Suspect]
     Indication: ATRIAL FIBRILLATION
     Dosage: 300 MG
  2. PRADAXA [Suspect]
     Dosage: 300 MG
     Dates: start: 201207, end: 201308
  3. ATOVASTATIN [Concomitant]
     Dosage: 0.0167 MG
     Route: 048
  4. ATOVASTATIN [Concomitant]
     Dosage: 0.6667 MG
     Route: 048
  5. METOPROLOL [Concomitant]
     Dosage: 0.1301 MG
     Route: 048
  6. RAMIPRIL [Concomitant]
     Dosage: DOSE PER APPLICATION: 5/25 NUMBER
     Route: 048

REACTIONS (1)
  - Cerebral haemorrhage [Fatal]
